FAERS Safety Report 6682394-X (Version None)
Quarter: 2010Q2

REPORT INFORMATION
  Report Type: 
  Country: None (occurrence: None)
  Receive Date: 20100415
  Receipt Date: 20100405
  Transmission Date: 20101027
  Serious: Yes (Death, Hospitalization, Other)
  Sender: FDA-Public Use
  Company Number: US-PFIZER INC-2009308627

PATIENT
  Age: 36 Year
  Sex: Female
  Weight: 63.5 kg

DRUGS (10)
  1. SUNITINIB MALATE [Suspect]
     Indication: ADRENAL CARCINOMA
     Dosage: 37.5 MG, 1X/DAY, DAYS 1-28
     Route: 048
     Dates: start: 20091030, end: 20091121
  2. BEVACIZUMAB [Suspect]
     Indication: ADRENAL CARCINOMA
     Dosage: 5 MG/KG, OVER 30-90 MINUTES, DAY 1, 15 AND 29
     Route: 042
     Dates: start: 20091030, end: 20091113
  3. AMLODIPINE [Concomitant]
  4. SPIRONOLACTONE [Concomitant]
  5. ROXICET [Concomitant]
  6. POTASSIUM CHLORIDE [Concomitant]
  7. RISPERIDONE [Concomitant]
  8. ACETYLSALICYLIC ACID [Concomitant]
  9. DOCUSATE SODIUM [Concomitant]
  10. LABETALOL [Concomitant]

REACTIONS (6)
  - DEATH [None]
  - HYPOTENSION [None]
  - MYOCARDIAL INFARCTION [None]
  - NEUTROPENIA [None]
  - PULMONARY THROMBOSIS [None]
  - THROMBOCYTOPENIA [None]
